FAERS Safety Report 8462152-6 (Version None)
Quarter: 2012Q2

REPORT INFORMATION
  Report Type: 
  Country: None (occurrence: None)
  Receive Date: 20120625
  Receipt Date: 20120611
  Transmission Date: 20120825
  Serious: Yes (Hospitalization)
  Sender: FDA-Public Use
  Company Number: DE-MYLANLABS-2012S1011882

PATIENT
  Age: 66 Year
  Sex: Female

DRUGS (3)
  1. LEVOFLOXACIN [Concomitant]
     Indication: CYSTITIS
     Route: 065
  2. BACTRIM [Concomitant]
     Indication: CYSTITIS
     Route: 065
  3. DICLOFENAC SODIUM [Suspect]
     Indication: BACK PAIN
     Route: 065

REACTIONS (2)
  - RENAL FAILURE ACUTE [None]
  - ANAEMIA HAEMOLYTIC AUTOIMMUNE [None]
